FAERS Safety Report 9375129 (Version 1)
Quarter: 2013Q2

REPORT INFORMATION
  Report Type: Spontaneous
  Country: US (occurrence: US)
  Receive Date: 20130628
  Receipt Date: 20130628
  Transmission Date: 20140414
  Serious: No
  Sender: FDA-Public Use
  Company Number: US-JNJFOC-20130610488

PATIENT
  Age: 40 Year
  Sex: Female
  Weight: 104.33 kg

DRUGS (8)
  1. DURAGESIC [Suspect]
     Indication: PAIN
     Route: 062
  2. DURAGESIC [Suspect]
     Indication: PAIN
     Route: 062
  3. DURAGESIC [Suspect]
     Indication: PAIN
     Route: 062
  4. NORCO [Concomitant]
     Indication: PAIN
     Route: 048
     Dates: start: 2011
  5. MORPHINE [Concomitant]
     Indication: PAIN
     Route: 048
     Dates: start: 201209
  6. SOMA [Concomitant]
     Indication: MUSCLE RELAXANT THERAPY
     Route: 048
     Dates: start: 2011
  7. FUROSEMIDE [Concomitant]
     Indication: OEDEMA
     Route: 048
  8. TRILIPIX [Concomitant]
     Indication: BLOOD TRIGLYCERIDES INCREASED
     Route: 048
     Dates: start: 2013

REACTIONS (4)
  - Product quality issue [Unknown]
  - Drug ineffective [Recovered/Resolved]
  - Drug dose omission [Not Recovered/Not Resolved]
  - Product quality issue [Unknown]
